FAERS Safety Report 6456671-1 (Version None)
Quarter: 2009Q4

REPORT INFORMATION
  Report Type: 
  Country: None (occurrence: None)
  Receive Date: 20091125
  Receipt Date: 20090327
  Transmission Date: 20100525
  Serious: No
  Sender: FDA-Public Use
  Company Number: A0777143A

PATIENT
  Age: 70 Year
  Sex: Male

DRUGS (14)
  1. LANOXIN [Suspect]
     Indication: DRUG USE FOR UNKNOWN INDICATION
     Route: 065
  2. COUMADIN [Suspect]
     Indication: DRUG USE FOR UNKNOWN INDICATION
     Route: 065
  3. LEUPROLIDE ACETATE [Suspect]
     Indication: PROSTATE CANCER
     Dosage: 22.5MG SEE DOSAGE TEXT
     Route: 058
  4. DOCETAXEL [Concomitant]
  5. LEVOTHYROXINE [Concomitant]
  6. ZOLEDRONIC ACID [Concomitant]
  7. PEGFILGRASTIM [Concomitant]
  8. CALCIUM [Concomitant]
  9. MAGNESIUM [Concomitant]
  10. VITAMIN D [Concomitant]
  11. PREDNISONE [Concomitant]
  12. GLIPIZIDE [Concomitant]
  13. PANTOPRAZOLE [Concomitant]
  14. PARACETAMOL [Concomitant]

REACTIONS (2)
  - BLOOD GLUCOSE ABNORMAL [None]
  - BLOOD GLUCOSE INCREASED [None]
